FAERS Safety Report 24753195 (Version 5)
Quarter: 2025Q2

REPORT INFORMATION
  Report Type: Spontaneous
  Country: US (occurrence: US)
  Receive Date: 20241219
  Receipt Date: 20250429
  Transmission Date: 20250717
  Serious: Yes (Other)
  Sender: MERCK SHARP & DOHME LLC
  Company Number: US-PFIZER INC-202400192665

PATIENT
  Age: 67 Year
  Sex: Female

DRUGS (5)
  1. TUCATINIB [Suspect]
     Active Substance: TUCATINIB
     Indication: Breast cancer metastatic
     Dosage: DOSE DESCRIPTION : TWO 150MG TABLETS TAKEN BY MOUTH TWICE A DAY?DAILY DOSE : 600 MILLIGRAM?CONCEN...
     Route: 048
  2. TUCATINIB [Suspect]
     Active Substance: TUCATINIB
     Indication: Breast cancer metastatic
     Dosage: DOSE DESCRIPTION : TUKYSA 50 MG BY MOUTH 2 PO (PER ORAL) BID (TWICE A DAY)/50 MG 2 BID (TWICE A D...
     Route: 048
  3. CAPECITABINE [Suspect]
     Active Substance: CAPECITABINE
     Dates: end: 20241010
  4. HERCEPTIN [Suspect]
     Active Substance: TRASTUZUMAB
  5. ENHERTU [Concomitant]
     Active Substance: FAM-TRASTUZUMAB DERUXTECAN-NXKI

REACTIONS (7)
  - Stomatitis [Unknown]
  - Breast cancer metastatic [Unknown]
  - Off label use [Unknown]
  - Off label use [Unknown]
  - Product use issue [Unknown]
  - Metastases to bone [Unknown]
  - Malignant neoplasm progression [Unknown]
